FAERS Safety Report 4406160-0 (Version None)
Quarter: 2004Q3

REPORT INFORMATION
  Report Type: 
  Country: None (occurrence: None)
  Receive Date: 20040723
  Receipt Date: 20040430
  Transmission Date: 20050211
  Serious: No
  Sender: FDA-Public Use
  Company Number: US-GLAXOSMITHKLINE-A0509117A

PATIENT
  Age: 73 Year
  Sex: Male

DRUGS (11)
  1. AVANDIA [Suspect]
     Dosage: 8MG PER DAY
     Route: 048
     Dates: start: 20030101
  2. GLUCOVANCE [Concomitant]
  3. FUROSEMIDE [Concomitant]
  4. NEXIUM [Concomitant]
  5. UNIPHYL [Concomitant]
  6. SKELAXIN [Concomitant]
  7. SULINDAC [Concomitant]
  8. RYNATAN [Concomitant]
  9. OXYCONTIN [Concomitant]
  10. OXYCODONE HCL [Concomitant]
  11. MULTIVITAMIN [Concomitant]

REACTIONS (5)
  - ASTHENIA [None]
  - DYSPNOEA [None]
  - FATIGUE [None]
  - SWELLING [None]
  - WEIGHT INCREASED [None]
